FAERS Safety Report 24382204 (Version 4)
Quarter: 2025Q1

REPORT INFORMATION
  Report Type: Spontaneous
  Country: AU (occurrence: AU)
  Receive Date: 20241001
  Receipt Date: 20250207
  Transmission Date: 20250409
  Serious: Yes (Other)
  Sender: RANBAXY
  Company Number: AU-SUN PHARMACEUTICAL INDUSTRIES LTD-2024R1-470639

PATIENT
  Age: 58 Year
  Sex: Male
  Weight: 65 kg

DRUGS (27)
  1. METOCLOPRAMIDE [Suspect]
     Active Substance: METOCLOPRAMIDE
     Indication: Nausea
     Dosage: 10 MILLIGRAM, OD
     Route: 048
  2. TELMISARTAN [Suspect]
     Active Substance: TELMISARTAN
     Indication: Hypertension
     Dosage: 40 MILLIGRAM, OD
     Route: 048
  3. DAPAGLIFLOZIN [Suspect]
     Active Substance: DAPAGLIFLOZIN
     Indication: Type 2 diabetes mellitus
     Dosage: 10 MILLIGRAM, OD
     Route: 048
  4. EMTRICITABINE\TENOFOVIR [Suspect]
     Active Substance: EMTRICITABINE\TENOFOVIR
     Indication: Prophylaxis against HIV infection
     Route: 065
  5. ONDANSETRON [Suspect]
     Active Substance: ONDANSETRON
     Indication: Nausea
     Dosage: 4 MILLIGRAM, TID
     Route: 048
  6. DIAZEPAM [Suspect]
     Active Substance: DIAZEPAM
     Indication: Anxiety
     Dosage: 5 MILLIGRAM, 1DOSE/24HOUR
     Route: 048
     Dates: start: 2018
  7. ENTECAVIR [Suspect]
     Active Substance: ENTECAVIR
     Indication: Chronic hepatitis B
     Dosage: 0.5 MILLIGRAM, 1DOSE/24HOUR
     Route: 048
     Dates: start: 2022
  8. LACTULOSE [Suspect]
     Active Substance: LACTULOSE
     Indication: Constipation
     Route: 048
     Dates: start: 2022, end: 2023
  9. PROCHLORPERAZINE [Suspect]
     Active Substance: PROCHLORPERAZINE
     Indication: Nausea
     Dosage: 5 MILLIGRAM, TID
     Route: 048
  10. TEMAZEPAM [Suspect]
     Active Substance: TEMAZEPAM
     Indication: Product used for unknown indication
     Dosage: 40 MILLIGRAM, 1DOSE/24HOUR
     Route: 048
     Dates: start: 2018, end: 2023
  11. TEMAZEPAM [Suspect]
     Active Substance: TEMAZEPAM
     Route: 065
     Dates: start: 2022, end: 2023
  12. ATORVASTATIN [Concomitant]
     Active Substance: ATORVASTATIN
     Indication: Hypercholesterolaemia
     Dosage: 80 MILLIGRAM, 1DOSE/24HOUR
     Route: 048
     Dates: start: 2018
  13. FENOFIBRATE [Concomitant]
     Active Substance: FENOFIBRATE
     Indication: Hypercholesterolaemia
     Dosage: 145 MILLIGRAM, 1DOSE/24HOUR
     Route: 048
     Dates: start: 2018
  14. INSULIN GLARGINE [Concomitant]
     Active Substance: INSULIN GLARGINE
     Indication: Type 2 diabetes mellitus
     Dosage: 30 INTERNATIONAL UNIT, 1DOSE/24HOUR
     Route: 058
     Dates: start: 2018, end: 2023
  15. LEVOTHYROXINE SODIUM [Concomitant]
     Active Substance: LEVOTHYROXINE SODIUM
     Indication: Thyroid hormone replacement therapy
     Dosage: 100 MICROGRAM, 1DOSE/24HOUR
     Route: 065
     Dates: start: 2018
  16. LEVOTHYROXINE SODIUM [Concomitant]
     Active Substance: LEVOTHYROXINE SODIUM
     Dosage: 150 MICROGRAM, 1DOSE/24HOUR
     Route: 065
     Dates: start: 2018
  17. ACETAMINOPHEN [Concomitant]
     Active Substance: ACETAMINOPHEN
     Indication: Pain
     Route: 048
     Dates: start: 2018
  18. PROCHLORPERAZINE MALEATE [Concomitant]
     Active Substance: PROCHLORPERAZINE MALEATE
     Indication: Bipolar disorder
     Dosage: 30 MILLIGRAM, 1DOSE/24HOUR
     Route: 048
     Dates: start: 2021
  19. QUETIAPINE FUMARATE [Concomitant]
     Active Substance: QUETIAPINE FUMARATE
     Indication: Bipolar disorder
     Dosage: 50 MILLIGRAM, 1DOSE/24HOUR
     Route: 048
     Dates: start: 2018
  20. ALBUTEROL SULFATE [Concomitant]
     Active Substance: ALBUTEROL SULFATE
     Indication: Chronic obstructive pulmonary disease
     Dates: start: 2018
  21. TIOTROPIUM [Concomitant]
     Active Substance: TIOTROPIUM
     Indication: Chronic obstructive pulmonary disease
     Dosage: 2.5 MICROGRAM, 1DOSE/24HOUR
     Dates: start: 2018
  22. VORTIOXETINE HYDROBROMIDE [Suspect]
     Active Substance: VORTIOXETINE HYDROBROMIDE
     Indication: Bipolar disorder
     Route: 048
     Dates: start: 2021
  23. BENSERAZIDE\LEVODOPA [Suspect]
     Active Substance: BENSERAZIDE\LEVODOPA
     Indication: Parkinsonism
     Route: 048
     Dates: start: 2020, end: 2023
  24. BENSERAZIDE\LEVODOPA [Suspect]
     Active Substance: BENSERAZIDE\LEVODOPA
     Route: 048
     Dates: start: 2020, end: 2023
  25. LARODOPA [Suspect]
     Active Substance: LEVODOPA
     Indication: Prophylaxis against HIV infection
     Route: 065
     Dates: start: 2023
  26. TENOFOVIR [Suspect]
     Active Substance: TENOFOVIR
     Indication: Prophylaxis against HIV infection
     Route: 065
     Dates: start: 2023
  27. ENTECAVIR [Suspect]
     Active Substance: ENTECAVIR
     Indication: Chronic hepatitis B
     Route: 048
     Dates: start: 2022

REACTIONS (11)
  - Acute kidney injury [Recovered/Resolved]
  - Euglycaemic diabetic ketoacidosis [Unknown]
  - Parkinsonism [Recovered/Resolved]
  - Dehydration [Unknown]
  - Hypophagia [Unknown]
  - Fall [Unknown]
  - Mobility decreased [Unknown]
  - Nephropathy toxic [Unknown]
  - Starvation [Unknown]
  - Constipation [Recovered/Resolved]
  - Nausea [Recovered/Resolved]

NARRATIVE: CASE EVENT DATE: 20230101
